FAERS Safety Report 5815561-5 (Version None)
Quarter: 2008Q3

REPORT INFORMATION
  Report Type: 
  Country: None (occurrence: None)
  Receive Date: 20080718
  Receipt Date: 20080707
  Transmission Date: 20090109
  Serious: Yes (Disabling)
  Sender: FDA-Public Use
  Company Number: JP-PFIZER INC-2008058000

PATIENT
  Age: 75 Year
  Sex: Male

DRUGS (3)
  1. IRINOTECAN HCL [Suspect]
     Indication: GASTRIC CANCER
     Dosage: DAILY DOSE:150MG/M2
     Route: 042
     Dates: start: 20080516, end: 20080613
  2. NASEA [Concomitant]
     Indication: PREMEDICATION
     Route: 042
     Dates: start: 20080516, end: 20080613
  3. DECADRON [Concomitant]
     Indication: PREMEDICATION
     Route: 042
     Dates: start: 20080516, end: 20080613

REACTIONS (1)
  - ATRIOVENTRICULAR BLOCK COMPLETE [None]
